FAERS Safety Report 8042452-4 (Version None)
Quarter: 2012Q1

REPORT INFORMATION
  Report Type: 
  Country: None (occurrence: None)
  Receive Date: 20120112
  Receipt Date: 20120111
  Transmission Date: 20120608
  Serious: No
  Sender: FDA-Public Use
  Company Number: US-BAYER-2012-003650

PATIENT
  Age: 29 Year
  Sex: Female

DRUGS (4)
  1. ZANTAC [Concomitant]
     Dosage: 75
  2. CALCIUM CARBONATE [Concomitant]
     Dosage: 500 MG, UNK
  3. BETASERON [Suspect]
     Indication: PRIMARY PROGRESSIVE MULTIPLE SCLEROSIS
     Dosage: 0.3 MG, QOD
     Route: 058
  4. LYRICA [Concomitant]
     Dosage: 50 MG, UNK

REACTIONS (2)
  - INJECTION SITE REACTION [None]
  - CONTUSION [None]
